FAERS Safety Report 6459453-X (Version None)
Quarter: 2009Q4

REPORT INFORMATION
  Report Type: 
  Country: None (occurrence: None)
  Receive Date: 20091127
  Receipt Date: 20091113
  Transmission Date: 20100525
  Serious: Yes (Hospitalization, Other)
  Sender: FDA-Public Use
  Company Number: MX-ELI_LILLY_AND_COMPANY-MX200911003674

PATIENT
  Age: 53 Year
  Sex: Female
  Weight: 75 kg

DRUGS (5)
  1. HUMULIN 70/30 [Suspect]
     Indication: TYPE 2 DIABETES MELLITUS
     Dosage: 90 IU, OTHER
     Route: 058
     Dates: start: 20040101
  2. HUMALOG MIX 75/25 [Suspect]
     Dosage: 50 IU, OTHER
     Route: 058
     Dates: start: 20091001
  3. METFORMIN HCL [Concomitant]
     Dosage: UNK, 2/D
     Route: 065
  4. VALPROATE MAGNESIUM [Concomitant]
     Indication: ISCHAEMIA
     Dosage: 500 MG, EACH EVENING
     Route: 065
  5. MICARDIS [Concomitant]
     Indication: CARDIAC DISORDER
     Dosage: 40 MG, UNKNOWN
     Route: 065

REACTIONS (7)
  - DRUG DISPENSING ERROR [None]
  - DYSLIPIDAEMIA [None]
  - HEADACHE [None]
  - HYPERGLYCAEMIA [None]
  - NAUSEA [None]
  - SWEAT GLAND DISORDER [None]
  - TRANSIENT ISCHAEMIC ATTACK [None]
